FAERS Safety Report 16979491 (Version 2)
Quarter: 2019Q4

REPORT INFORMATION
  Report Type: Spontaneous
  Country: BR (occurrence: BR)
  Receive Date: 20191031
  Receipt Date: 20191210
  Transmission Date: 20200122
  Serious: Yes (Disabling, Other)
  Sender: FDA-Public Use
  Company Number: BR-SA-2019SA290259

PATIENT
  Sex: Female
  Weight: 78 kg

DRUGS (11)
  1. NOVOLIN [Concomitant]
     Active Substance: INSULIN HUMAN
     Dosage: IN THE MORNING, IN THE AFTERNOON BEFORE SNACK AND AT NIGHT, TID
     Route: 065
  2. XIGDUO XR [Concomitant]
     Active Substance: DAPAGLIFLOZIN PROPANEDIOL\METFORMIN HYDROCHLORIDE
     Indication: DIABETES MELLITUS MANAGEMENT
     Dosage: TWICE DAILY (IN THE MORNING AND AT NIGHT)
     Route: 048
     Dates: start: 2017
  3. LOSARTAN. [Concomitant]
     Active Substance: LOSARTAN
     Indication: BLOOD PRESSURE MEASUREMENT
     Dosage: TWICE A DAILY ( IN THE MORNING AND AFTERNOON)
     Route: 048
     Dates: start: 2011
  4. LANTUS [Suspect]
     Active Substance: INSULIN GLARGINE
     Indication: DIABETES MELLITUS
     Dosage: TWICE DAILY (30 IU IN THE MORNING AND 18 IU AT NIGHT)
     Route: 058
     Dates: start: 2011
  5. SIMVASTATIN. [Concomitant]
     Active Substance: SIMVASTATIN
     Indication: BLOOD CHOLESTEROL INCREASED
     Dosage: 1 DF, HS
     Route: 048
  6. TRAVATAN [Concomitant]
     Active Substance: TRAVOPROST
     Indication: GLAUCOMA
     Dosage: UNK UNK, HS
     Route: 048
     Dates: start: 2017
  7. MAXSULID [Concomitant]
     Active Substance: NIMESULIDE
     Indication: ARTHRALGIA
     Dosage: TWICE DAILY ( IN THE MORNING AND AT NIGHT)
     Route: 048
     Dates: start: 2017
  8. ATENOLOL. [Concomitant]
     Active Substance: ATENOLOL
     Indication: HEART RATE INCREASED
     Dosage: 2 TABLETS DAILY ( 1 IN THE MORNING AND 1 AT NIGHT)
     Route: 048
     Dates: start: 2017
  9. GLAUB [Concomitant]
     Active Substance: BRIMONIDINE TARTRATE
     Indication: GLAUCOMA
     Dosage: IN THE MORNING
     Route: 048
     Dates: start: 2017
  10. SERTRALINE HYDROCHLORIDE. [Concomitant]
     Active Substance: SERTRALINE HYDROCHLORIDE
     Dosage: 2 TABLETS DAILY ( 1 IN THE MORNING AND 1 AT NIGHT)
     Route: 048
     Dates: start: 2018
  11. ALPRAZOLAM. [Concomitant]
     Active Substance: ALPRAZOLAM
     Indication: INSOMNIA
     Dosage: 1 DF, HS
     Route: 048
     Dates: start: 2016

REACTIONS (4)
  - Inappropriate schedule of product administration [Unknown]
  - Blindness unilateral [Unknown]
  - Blood glucose increased [Unknown]
  - Glaucoma [Unknown]
